FAERS Safety Report 7413739-0 (Version None)
Quarter: 2011Q2

REPORT INFORMATION
  Report Type: 
  Country: None (occurrence: None)
  Receive Date: 20110413
  Receipt Date: 20110408
  Transmission Date: 20111010
  Serious: Yes (Other)
  Sender: FDA-Public Use
  Company Number: DE-ABBOTT-11P-062-0717802-00

PATIENT
  Age: 65 Year
  Sex: Male

DRUGS (28)
  1. KEPPRA [Suspect]
     Indication: CONVULSION
     Dosage: FILM COATED
     Route: 048
     Dates: start: 20110201, end: 20110201
  2. KEPPRA [Suspect]
     Indication: STATUS EPILEPTICUS
  3. ORFIRIL [Concomitant]
     Indication: PRODUCT USED FOR UNKNOWN INDICATION
     Dates: start: 20110201, end: 20110201
  4. TORSEMIDE [Concomitant]
     Indication: PRODUCT USED FOR UNKNOWN INDICATION
  5. MAGNESIUM HYDROGEN ASPARTATE [Concomitant]
     Indication: PRODUCT USED FOR UNKNOWN INDICATION
  6. KALINOR [Concomitant]
     Indication: PRODUCT USED FOR UNKNOWN INDICATION
  7. KEPPRA [Suspect]
     Indication: EPILEPSY
     Route: 048
     Dates: start: 20110201
  8. XUSAL [Concomitant]
     Indication: PRODUCT USED FOR UNKNOWN INDICATION
     Dates: start: 20110201
  9. CLEXANE [Concomitant]
     Indication: PRODUCT USED FOR UNKNOWN INDICATION
     Dates: start: 20110201, end: 20110201
  10. ERGENYL [Suspect]
     Indication: CONVULSION
     Route: 048
     Dates: start: 20110201
  11. CIPROBAY [Concomitant]
     Indication: PRODUCT USED FOR UNKNOWN INDICATION
  12. ERGENYL [Suspect]
     Indication: EPILEPSY
  13. TOPAMAX [Suspect]
     Indication: CONVULSION
     Route: 048
     Dates: start: 20110201, end: 20110201
  14. DECORTIN [Concomitant]
     Indication: PRODUCT USED FOR UNKNOWN INDICATION
     Dates: start: 20110301
  15. BROMAZEPAM [Concomitant]
     Indication: PRODUCT USED FOR UNKNOWN INDICATION
  16. CIPROFLOXACIN [Concomitant]
     Indication: PRODUCT USED FOR UNKNOWN INDICATION
  17. AMOCLAV PLUS [Concomitant]
     Indication: PRODUCT USED FOR UNKNOWN INDICATION
  18. TOPAMAX [Suspect]
     Indication: EPILEPSY
     Dosage: FILM COATED
     Route: 048
     Dates: start: 20110201
  19. METAMIZOLE SODIUM [Concomitant]
     Indication: PRODUCT USED FOR UNKNOWN INDICATION
     Dates: start: 20110301
  20. MOVIPREP [Concomitant]
     Indication: PRODUCT USED FOR UNKNOWN INDICATION
  21. METHIONINE [Concomitant]
     Indication: PRODUCT USED FOR UNKNOWN INDICATION
  22. CALCIUM [Concomitant]
     Indication: PRODUCT USED FOR UNKNOWN INDICATION
  23. PANTOPRAZOLE [Concomitant]
     Indication: PRODUCT USED FOR UNKNOWN INDICATION
     Dates: start: 20110301
  24. COTRIM [Concomitant]
     Indication: PRODUCT USED FOR UNKNOWN INDICATION
  25. ACETYLSALICYLIC ACID SRT [Concomitant]
     Indication: PRODUCT USED FOR UNKNOWN INDICATION
  26. CONCOR [Concomitant]
     Indication: PRODUCT USED FOR UNKNOWN INDICATION
     Dates: end: 20110201
  27. TOPAMAX [Suspect]
     Indication: STATUS EPILEPTICUS
  28. CANDESARTAN CILEXETIL [Concomitant]
     Indication: PRODUCT USED FOR UNKNOWN INDICATION

REACTIONS (7)
  - PANIC ATTACK [None]
  - ANXIETY [None]
  - DISORIENTATION [None]
  - CONFUSIONAL STATE [None]
  - AGGRESSION [None]
  - PERSONALITY DISORDER [None]
  - MUSCLE SPASMS [None]
